FAERS Safety Report 12972302 (Version 2)
Quarter: 2016Q4

REPORT INFORMATION
  Report Type: Spontaneous
  Country: AU (occurrence: AU)
  Receive Date: 20161124
  Receipt Date: 20161125
  Transmission Date: 20170207
  Serious: Yes (Hospitalization, Other)
  Sender: FDA-Public Use
  Company Number: AU-SUN PHARMACEUTICAL INDUSTRIES LTD-2016RR-128416

PATIENT
  Age: 1 Year
  Sex: Male

DRUGS (9)
  1. GLUCOSE [Concomitant]
     Active Substance: DEXTROSE
     Indication: HYPERINSULINISM
     Dosage: 12 MG/KG
     Route: 042
  2. OCTREOTIDE. [Suspect]
     Active Substance: OCTREOTIDE
     Dosage: 36MCG/KG/DAY
     Route: 058
  3. DIAZOXIDE [Concomitant]
     Active Substance: DIAZOXIDE
     Indication: HYPERINSULINISM
     Dosage: 20 MG/KG
     Route: 065
  4. OCTREOTIDE. [Suspect]
     Active Substance: OCTREOTIDE
     Indication: HYPERINSULINISM
     Dosage: 26MCG/KG/DAY
     Route: 058
  5. OCTREOTIDE. [Suspect]
     Active Substance: OCTREOTIDE
     Dosage: 27MCG/KG/DAY
     Route: 058
  6. SIROLIMUS. [Suspect]
     Active Substance: SIROLIMUS
     Indication: HYPERINSULINISM
     Dosage: 0.5 MG/M2, DAILY
     Route: 065
  7. SIROLIMUS. [Suspect]
     Active Substance: SIROLIMUS
     Dosage: 6 MG/M2, DAILY
     Route: 058
  8. GLUCAGON. [Concomitant]
     Active Substance: GLUCAGON
     Indication: HYPERINSULINISM
     Route: 065
  9. OCTREOTIDE. [Suspect]
     Active Substance: OCTREOTIDE
     Dosage: 37MCG/KG/DAY
     Route: 058

REACTIONS (2)
  - Failure to thrive [Recovering/Resolving]
  - Drug ineffective [Unknown]
